FAERS Safety Report 15610382 (Version 1)
Quarter: 2018Q4

REPORT INFORMATION
  Report Type: Report from Study
  Country: None (occurrence: US)
  Receive Date: 20181113
  Receipt Date: 20181113
  Transmission Date: 20190205
  Serious: Yes (Other)
  Sender: FDA-Public Use
  Company Number: US-ABBVIE-18K-163-2499292-00

PATIENT
  Age: 66 Year
  Sex: Female
  Weight: 116.68 kg

DRUGS (21)
  1. HUMIRA [Suspect]
     Active Substance: ADALIMUMAB
     Route: 058
     Dates: start: 20181026
  2. VENTOLIN [Concomitant]
     Active Substance: ALBUTEROL SULFATE
     Indication: ASTHMA
  3. ASPIRIN. [Concomitant]
     Active Substance: ASPIRIN
     Indication: CARDIAC DISORDER
  4. DILTIAZEM CD [Concomitant]
     Active Substance: DILTIAZEM
     Indication: HYPERTENSION
  5. FERROUS GLUCONATE [Concomitant]
     Active Substance: FERROUS GLUCONATE
     Indication: IRON DEFICIENCY
  6. OMEPRAZOLE. [Concomitant]
     Active Substance: OMEPRAZOLE
     Indication: ULCER
  7. VITAMIN D3 [Concomitant]
     Active Substance: CHOLECALCIFEROL
     Indication: CARDIOVASCULAR EVENT PROPHYLAXIS
  8. FISH OIL [Concomitant]
     Active Substance: FISH OIL
     Indication: MEMORY IMPAIRMENT
  9. BREO ELLIPTA [Concomitant]
     Active Substance: FLUTICASONE FUROATE\VILANTEROL TRIFENATATE
     Indication: ASTHMA
  10. AMITRIPTYLINE [Concomitant]
     Active Substance: AMITRIPTYLINE
     Indication: DEPRESSION
  11. HYDROXYCHLOROQUINE [Concomitant]
     Active Substance: HYDROXYCHLOROQUINE
     Indication: RHEUMATOID ARTHRITIS
  12. LEVOTHYROXINE. [Concomitant]
     Active Substance: LEVOTHYROXINE
     Indication: HYPOTHYROIDISM
  13. LOSARTAN. [Concomitant]
     Active Substance: LOSARTAN
     Indication: PRODUCT USED FOR UNKNOWN INDICATION
  14. TRIAMTERENE/HYDROCHLOROTHIAZIDE [Concomitant]
     Active Substance: HYDROCHLOROTHIAZIDE\TRIAMTERENE
     Indication: HYPERTENSION
  15. ALBUTEROL SULFATE. [Concomitant]
     Active Substance: ALBUTEROL SULFATE
     Indication: ASTHMA
  16. ATORVASTATIN [Concomitant]
     Active Substance: ATORVASTATIN
     Indication: HYPERLIPIDAEMIA
  17. VITAMIN B12 [Concomitant]
     Active Substance: CYANOCOBALAMIN
     Indication: MEMORY IMPAIRMENT
  18. NITROGLYCERIN. [Concomitant]
     Active Substance: NITROGLYCERIN
     Indication: CHEST PAIN
  19. HUMIRA [Suspect]
     Active Substance: ADALIMUMAB
     Indication: RHEUMATOID ARTHRITIS
     Route: 058
     Dates: start: 2017, end: 20181001
  20. FLUTICASONE. [Concomitant]
     Active Substance: FLUTICASONE
     Indication: SINUS DISORDER
  21. PRENATAL VITAMINS [Concomitant]
     Active Substance: VITAMINS
     Indication: BLOOD IRON DECREASED

REACTIONS (3)
  - Hypoaesthesia [Recovering/Resolving]
  - Papillary cystadenoma lymphomatosum [Recovering/Resolving]
  - Post procedural swelling [Recovering/Resolving]

NARRATIVE: CASE EVENT DATE: 201804
